FAERS Safety Report 4890372-6 (Version None)
Quarter: 2005Q4

REPORT INFORMATION
  Report Type: 
  Country: None (occurrence: None)
  Receive Date: 20051216
  Receipt Date: 20051011
  Transmission Date: 20060501
  Serious: No
  Sender: FDA-Public Use
  Company Number: USA0510110465

PATIENT
  Age: 63 Year
  Sex: Male

DRUGS (4)
  1. CIALIS [Suspect]
     Indication: ERECTILE DYSFUNCTION
     Dosage: 20 MG
  2. ALTACE [Concomitant]
  3. NIACIN [Concomitant]
  4. ATACAND [Concomitant]

REACTIONS (1)
  - PARAESTHESIA [None]
